FAERS Safety Report 5654593-7 (Version None)
Quarter: 2008Q1

REPORT INFORMATION
  Report Type: 
  Country: None (occurrence: None)
  Receive Date: 20080307
  Receipt Date: 20080215
  Transmission Date: 20080703
  Serious: Yes (Other)
  Sender: FDA-Public Use
  Company Number: JP-JNJFOC-20071206330

PATIENT
  Sex: Male
  Weight: 65 kg

DRUGS (37)
  1. ITRIZOLE [Suspect]
     Route: 048
  2. ITRIZOLE [Suspect]
     Indication: FEBRILE NEUTROPENIA
     Route: 048
  3. ITRIZOLE [Suspect]
     Route: 041
  4. PRIMPERAN INJ [Concomitant]
     Route: 042
  5. VANCOMYCIN [Concomitant]
     Route: 041
  6. VANCOMYCIN [Concomitant]
     Route: 041
  7. VANCOMYCIN [Concomitant]
     Route: 041
  8. OMEPRAL [Concomitant]
     Route: 042
  9. OMEPRAL [Concomitant]
     Indication: GASTROINTESTINAL HAEMORRHAGE
     Route: 042
  10. KAYTWO N [Concomitant]
     Route: 042
  11. FINIBAX [Concomitant]
     Route: 041
  12. FINIBAX [Concomitant]
     Route: 041
  13. ADONA [Concomitant]
     Indication: GASTROINTESTINAL HAEMORRHAGE
     Route: 042
  14. BROACT [Concomitant]
     Indication: FEBRILE NEUTROPENIA
     Route: 042
  15. MEROPEN [Concomitant]
     Route: 041
  16. MEROPEN [Concomitant]
     Route: 041
  17. MEROPEN [Concomitant]
     Route: 041
  18. GRAN [Concomitant]
     Route: 058
  19. NEUART [Concomitant]
     Route: 042
  20. NEUART [Concomitant]
     Route: 042
  21. PASIL [Concomitant]
     Route: 041
  22. PASIL [Concomitant]
     Route: 041
  23. NISSEKI POLYGLOBIN-N [Concomitant]
     Route: 042
  24. NISSEKI POLYGLOBIN-N [Concomitant]
     Route: 042
  25. NEOMINOPHAGEN C [Concomitant]
     Route: 042
  26. NEOMINOPHAGEN C [Concomitant]
     Indication: ALLERGIC TRANSFUSION REACTION
     Route: 042
  27. FAMOTIDINE [Concomitant]
     Route: 042
  28. FAMOTIDINE [Concomitant]
     Indication: GASTROINTESTINAL HAEMORRHAGE
     Route: 042
  29. KYTRIL [Concomitant]
     Route: 042
  30. CYLOCIDE [Concomitant]
     Route: 042
  31. IDAMYCIN [Concomitant]
     Route: 042
  32. CALONAL [Concomitant]
     Route: 048
  33. PARIET [Concomitant]
     Indication: GASTROINTESTINAL HAEMORRHAGE
     Route: 048
  34. FUNGUARD [Concomitant]
     Route: 042
  35. ISEPACIN [Concomitant]
     Route: 042
  36. HYDROCORTONE [Concomitant]
     Route: 042
  37. MAXIPIME [Concomitant]
     Route: 042

REACTIONS (4)
  - FEBRILE NEUTROPENIA [None]
  - HYPOKALAEMIA [None]
  - LIVER DISORDER [None]
  - REFRACTORINESS TO PLATELET TRANSFUSION [None]
